FAERS Safety Report 8831077 (Version 1)
Quarter: 2012Q4

REPORT INFORMATION
  Report Type: 
  Country: US (occurrence: US)
  Receive Date: 20121008
  Receipt Date: 20121008
  Transmission Date: 20130627
  Serious: Yes (Death)
  Sender: FDA-Public Use
  Company Number: US-NOVOPROD-361547

PATIENT
  Sex: Male

DRUGS (1)
  1. NOVOLOG FLEXPEN [Suspect]
     Indication: DIABETES MELLITUS
     Dosage: Unknown
     Route: 058

REACTIONS (2)
  - Neoplasm malignant [Fatal]
  - Incorrect dose administered [Unknown]
